FAERS Safety Report 24364904 (Version 1)
Quarter: 2024Q3

REPORT INFORMATION
  Report Type: Spontaneous
  Country: US (occurrence: US)
  Receive Date: 20240926
  Receipt Date: 20240926
  Transmission Date: 20241016
  Serious: Yes (Other)
  Sender: BRISTOL MYERS SQUIBB
  Company Number: US-BRISTOL-MYERS SQUIBB COMPANY-2024-152128

PATIENT
  Age: 47 Year
  Sex: Male

DRUGS (1)
  1. IPILIMUMAB [Suspect]
     Active Substance: IPILIMUMAB
     Indication: Malignant melanoma

REACTIONS (4)
  - Immune-mediated hepatitis [Recovering/Resolving]
  - Immune-mediated pancreatitis [Recovering/Resolving]
  - Immune-mediated arthritis [Unknown]
  - Psoriasis [Unknown]
